FAERS Safety Report 14792501 (Version 1)
Quarter: 2018Q2

REPORT INFORMATION
  Report Type: Spontaneous
  Country: US (occurrence: US)
  Receive Date: 20180414
  Receipt Date: 20180414
  Transmission Date: 20180711
  Serious: No
  Sender: FDA-Public Use
  Company Number: None

PATIENT
  Age: 67 Year
  Sex: Female
  Weight: 54.45 kg

DRUGS (9)
  1. CARDIO TABS-MULTI VITAMINS [Concomitant]
  2. BONE ESSENTIALS [Concomitant]
  3. STEROLS [Concomitant]
     Active Substance: STEROLS
  4. OSTEO-BI-FLEX [Concomitant]
  5. RESTASIS [Concomitant]
     Active Substance: CYCLOSPORINE
  6. PROLIA [Suspect]
     Active Substance: DENOSUMAB
     Indication: OSTEOPOROSIS
     Dosage: ?          QUANTITY:1 INJECTION(S);OTHER FREQUENCY:EVERY 6 MONTHS;?
     Route: 058
     Dates: start: 20171113
  7. FLUROMETHOLONE EYE DROPS [Concomitant]
  8. COQ10 [Concomitant]
     Active Substance: UBIDECARENONE
  9. MILK THISTLE [Concomitant]
     Active Substance: DIETARY SUPPLEMENT\HERBALS\MILK THISTLE

REACTIONS (10)
  - Pruritus [None]
  - Myalgia [None]
  - Oral pain [None]
  - Dry skin [None]
  - Hypoaesthesia [None]
  - Fatigue [None]
  - Serum sickness [None]
  - Rash [None]
  - Urticaria [None]
  - Gait disturbance [None]

NARRATIVE: CASE EVENT DATE: 20171113
